FAERS Safety Report 8185248-5 (Version None)
Quarter: 2012Q1

REPORT INFORMATION
  Report Type: 
  Country: None (occurrence: None)
  Receive Date: 20120213
  Receipt Date: 20110426
  Transmission Date: 20120608
  Serious: Yes (Other)
  Sender: FDA-Public Use
  Company Number: E2020-09060-SPO-US

PATIENT
  Age: 86 Year
  Sex: Male

DRUGS (2)
  1. NAMENDA [Suspect]
     Indication: DEMENTIA ALZHEIMER'S TYPE
     Dosage: UNKNOWN, UNKNOWN, ORAL
     Route: 048
     Dates: start: 20110101
  2. ARICEPT [Suspect]
     Indication: DEMENTIA ALZHEIMER'S TYPE
     Dosage: UNKNOWN, UNKNOWN, ORAL
     Route: 048
     Dates: start: 20110101

REACTIONS (1)
  - DEMENTIA ALZHEIMER'S TYPE [None]
